FAERS Safety Report 6253770-4 (Version None)
Quarter: 2009Q2

REPORT INFORMATION
  Report Type: 
  Country: None (occurrence: None)
  Receive Date: 20090630
  Receipt Date: 20090617
  Transmission Date: 20091009
  Serious: Yes (Death, Hospitalization)
  Sender: FDA-Public Use
  Company Number: DE-2009-1235

PATIENT
  Sex: Female

DRUGS (3)
  1. NAVELBINE [Suspect]
     Indication: NON-SMALL CELL LUNG CANCER
     Dosage: 33 MG IV
     Route: 042
     Dates: start: 20081126, end: 20081203
  2. CISPLATIN [Suspect]
     Indication: NON-SMALL CELL LUNG CANCER
     Dosage: 80 MG
     Dates: start: 20080923, end: 20081203
  3. PACLITAXEL [Suspect]
     Dosage: 280 MG
     Dates: start: 20080923, end: 20081104

REACTIONS (6)
  - GENERAL PHYSICAL HEALTH DETERIORATION [None]
  - HAEMOPTYSIS [None]
  - PNEUMONIA [None]
  - PULMONARY EMBOLISM [None]
  - PULMONARY HAEMORRHAGE [None]
  - PYOTHORAX [None]
